FAERS Safety Report 4307487-3 (Version None)
Quarter: 2004Q1

REPORT INFORMATION
  Report Type: 
  Country: None (occurrence: None)
  Receive Date: 20040226
  Receipt Date: 20040216
  Transmission Date: 20041129
  Serious: Yes (Hospitalization)
  Sender: FDA-Public Use
  Company Number: 2004010454

PATIENT
  Age: 72 Year
  Sex: Female

DRUGS (11)
  1. NEURONTIN [Suspect]
     Indication: ILL-DEFINED DISORDER
     Dosage: ORAL
     Route: 048
     Dates: end: 20031205
  2. FUROSEMIDE [Suspect]
     Indication: ESSENTIAL HYPERTENSION
     Dosage: ORAL
     Route: 048
     Dates: end: 20031203
  3. IRBESARTAN (IRBESARTAN) [Suspect]
     Indication: ESSENTIAL HYPERTENSION
     Dosage: ORAL
     Route: 048
     Dates: end: 20031201
  4. TRAMADOL HCL [Suspect]
     Indication: ILL-DEFINED DISORDER
     Dosage: ORAL
     Route: 048
     Dates: end: 20031201
  5. AMLODIPINE BESYLATE [Concomitant]
  6. ACARBOSE (ACARBOSE) [Concomitant]
  7. LANSOPRAZOLE [Concomitant]
  8. DIFRAREL (BETACAROTENE, MYRTILLUS) [Concomitant]
  9. ACETAMINOPHEN [Concomitant]
  10. TRIMETAZIDINE HYDROCHLORIDE (TRIMETAZIDINE HYDROCHLORIDE) [Concomitant]
  11. VENLAFAXINE HCL [Suspect]
     Indication: DYSTHYMIC DISORDER
     Dosage: 75 MG , ORAL
     Route: 048
     Dates: end: 20031203

REACTIONS (7)
  - ATROPHY [None]
  - BRADYARRHYTHMIA [None]
  - ELECTROENCEPHALOGRAM ABNORMAL [None]
  - FALL [None]
  - HEADACHE [None]
  - METABOLIC DISORDER [None]
  - VERTIGO [None]
